FAERS Safety Report 7933492-1 (Version None)
Quarter: 2011Q4

REPORT INFORMATION
  Report Type: 
  Country: None (occurrence: None)
  Receive Date: 20111118
  Receipt Date: 20111107
  Transmission Date: 20120403
  Serious: Yes (Life-Threatening, Other)
  Sender: FDA-Public Use
  Company Number: 2011SP047480

PATIENT
  Age: 15 Year
  Sex: Female

DRUGS (4)
  1. ABILIFY [Concomitant]
  2. SEROQUEL [Concomitant]
  3. SAPHRIS [Suspect]
     Indication: PRODUCT USED FOR UNKNOWN INDICATION
     Dosage: 5 MG; ; SL
     Dates: start: 20110916, end: 20110916
  4. LAMICTAL [Concomitant]

REACTIONS (5)
  - FATIGUE [None]
  - RASH [None]
  - COELIAC DISEASE [None]
  - RESPIRATORY DISORDER [None]
  - ANAPHYLACTOID REACTION [None]
